FAERS Safety Report 6394919-2 (Version None)
Quarter: 2009Q4

REPORT INFORMATION
  Report Type: 
  Country: None (occurrence: None)
  Receive Date: 20091009
  Receipt Date: 20090930
  Transmission Date: 20100525
  Serious: Yes (Disabling)
  Sender: FDA-Public Use
  Company Number: ES-ROCHE-659832

PATIENT
  Age: 29 Year
  Sex: Female

DRUGS (1)
  1. BONIVA [Suspect]
     Route: 048
     Dates: start: 20090610, end: 20090810

REACTIONS (4)
  - ARTHRALGIA [None]
  - BONE INFARCTION [None]
  - CONDITION AGGRAVATED [None]
  - OSTEONECROSIS [None]
